FAERS Safety Report 4807098-7 (Version None)
Quarter: 2005Q4

REPORT INFORMATION
  Report Type: 
  Country: None (occurrence: None)
  Receive Date: 20051024
  Receipt Date: 20051020
  Transmission Date: 20060501
  Serious: Yes (Hospitalization)
  Sender: FDA-Public Use
  Company Number: US-GLAXOSMITHKLINE-A0579021A

PATIENT
  Age: 80 Year
  Sex: Male
  Weight: 76.4 kg

DRUGS (11)
  1. ROSIGLITAZONE [Suspect]
     Indication: DIABETES MELLITUS
     Route: 048
     Dates: start: 20020624
  2. METFORMIN [Suspect]
     Route: 048
     Dates: start: 20020107
  3. AMARYL [Suspect]
     Dates: start: 20020816
  4. ASPIRIN [Concomitant]
  5. MULTI-VITAMIN [Concomitant]
  6. GEMFIBROZIL [Concomitant]
  7. LASIX [Concomitant]
  8. POTASSIUM CHLORIDE [Concomitant]
  9. VYTORIN [Concomitant]
  10. ATENOLOL [Concomitant]
  11. BENAZEPRIL HCL [Concomitant]

REACTIONS (5)
  - DEPRESSED LEVEL OF CONSCIOUSNESS [None]
  - DIZZINESS [None]
  - HYPERHIDROSIS [None]
  - HYPOGLYCAEMIA [None]
  - VISUAL DISTURBANCE [None]
